FAERS Safety Report 7122360-3 (Version None)
Quarter: 2010Q4

REPORT INFORMATION
  Report Type: 
  Country: None (occurrence: None)
  Receive Date: 20101124
  Receipt Date: 20101111
  Transmission Date: 20110411
  Serious: Yes (Hospitalization)
  Sender: FDA-Public Use
  Company Number: PHHY2010JP75036

PATIENT
  Sex: Female

DRUGS (3)
  1. EXJADE [Suspect]
     Indication: APLASTIC ANAEMIA
     Dosage: 500MG DAILY
     Route: 048
     Dates: start: 20101008, end: 20101020
  2. EXJADE [Suspect]
     Indication: IRON OVERLOAD
  3. PRIMOBOLAN [Concomitant]
     Indication: APLASTIC ANAEMIA
     Dosage: 30 MG, UNK
     Route: 048
     Dates: start: 20100831, end: 20101028

REACTIONS (6)
  - ALANINE AMINOTRANSFERASE INCREASED [None]
  - LIVER DISORDER [None]
  - PAIN [None]
  - PRURITUS [None]
  - PYREXIA [None]
  - RASH [None]
